FAERS Safety Report 7101322-6 (Version None)
Quarter: 2010Q4

REPORT INFORMATION
  Report Type: 
  Country: None (occurrence: None)
  Receive Date: 20101115
  Receipt Date: 20101101
  Transmission Date: 20110411
  Serious: Yes (Hospitalization)
  Sender: FDA-Public Use
  Company Number: TW-JNJFOC-20101102966

PATIENT
  Sex: Male
  Weight: 52.5 kg

DRUGS (11)
  1. FENTANYL [Suspect]
     Indication: ILL-DEFINED DISORDER
     Route: 062
  2. FENTANYL CITRATE [Suspect]
     Indication: ILL-DEFINED DISORDER
     Dosage: 0.5 PCE
     Route: 042
  3. ACETAMINOPHEN [Suspect]
     Route: 065
  4. ACETAMINOPHEN [Suspect]
     Indication: ILL-DEFINED DISORDER
     Route: 065
  5. MORPHINE HYDROCHLORIDE [Suspect]
     Indication: ILL-DEFINED DISORDER
     Route: 065
  6. PROPOXYPHENE HCL CAP [Suspect]
     Indication: ILL-DEFINED DISORDER
     Route: 065
  7. CALCIUM POLYSTYRENE SULFONATE [Suspect]
     Indication: ILL-DEFINED DISORDER
     Route: 065
  8. URSODIOL [Suspect]
     Indication: ILL-DEFINED DISORDER
     Route: 065
  9. MEGESTROL ACETATE [Suspect]
     Indication: ILL-DEFINED DISORDER
     Route: 065
  10. ACETYLCYSTEINE [Suspect]
     Indication: ILL-DEFINED DISORDER
     Route: 065
  11. CEFTRIAXONE SODIUM [Suspect]
     Indication: ILL-DEFINED DISORDER
     Route: 065

REACTIONS (4)
  - FEELING COLD [None]
  - RESPIRATION ABNORMAL [None]
  - SLOW RESPONSE TO STIMULI [None]
  - SOMNOLENCE [None]
